FAERS Safety Report 6779464-4 (Version None)
Quarter: 2010Q2

REPORT INFORMATION
  Report Type: 
  Country: None (occurrence: None)
  Receive Date: 20100618
  Receipt Date: 20100615
  Transmission Date: 20101027
  Serious: Yes (Other)
  Sender: FDA-Public Use
  Company Number: CHPA2010US10108

PATIENT

DRUGS (1)
  1. TRANSDERM SCOP [Suspect]
     Dosage: UNK,  UNK
     Route: 062

REACTIONS (1)
  - AMNESIA [None]
